FAERS Safety Report 6660324-4 (Version None)
Quarter: 2010Q1

REPORT INFORMATION
  Report Type: 
  Country: None (occurrence: None)
  Receive Date: 20100331
  Receipt Date: 20100304
  Transmission Date: 20100710
  Serious: No
  Sender: FDA-Public Use
  Company Number: 2010BI006008

PATIENT
  Sex: Female

DRUGS (3)
  1. TYSABRI [Suspect]
     Indication: SECONDARY PROGRESSIVE MULTIPLE SCLEROSIS
     Dates: start: 20080722, end: 20100120
  2. TYSABRI [Suspect]
     Dates: start: 20050131, end: 20050131
  3. TYSABRI [Suspect]
     Dates: start: 20080125, end: 20080222

REACTIONS (1)
  - DRUG INEFFECTIVE [None]
